FAERS Safety Report 7910666-7 (Version None)
Quarter: 2011Q4

REPORT INFORMATION
  Report Type: 
  Country: None (occurrence: None)
  Receive Date: 20111111
  Receipt Date: 20111106
  Transmission Date: 20120403
  Serious: Yes (Hospitalization)
  Sender: FDA-Public Use
  Company Number: US-ABBOTT-11P-163-0872152-00

PATIENT
  Age: 22 Year
  Sex: Female

DRUGS (1)
  1. HUMIRA [Suspect]
     Indication: CROHN'S DISEASE

REACTIONS (7)
  - NAUSEA [None]
  - PAROTITIS [None]
  - COLITIS [None]
  - FATIGUE [None]
  - DIZZINESS [None]
  - WEIGHT DECREASED [None]
  - VOMITING [None]
